FAERS Safety Report 5620939-9 (Version None)
Quarter: 2008Q1

REPORT INFORMATION
  Report Type: 
  Country: None (occurrence: None)
  Receive Date: 20080208
  Receipt Date: 20080128
  Transmission Date: 20080703
  Serious: Yes (Other)
  Sender: FDA-Public Use
  Company Number: US-PFIZER INC-2008008697

PATIENT
  Sex: Female

DRUGS (11)
  1. LIPITOR [Suspect]
  2. NORVASC [Concomitant]
  3. POTASSIUM CHLORIDE [Concomitant]
  4. FUROSEMIDE [Concomitant]
  5. ZYRTEC [Concomitant]
  6. REQUIP [Concomitant]
  7. TRAMADOL - SLOW RELEASE [Concomitant]
  8. NEXIUM [Concomitant]
  9. ASPIRIN [Concomitant]
  10. SYNTHROID [Concomitant]
  11. WARFARIN SODIUM [Concomitant]

REACTIONS (1)
  - MUSCLE INJURY [None]
